FAERS Safety Report 10287823 (Version 4)
Quarter: 2014Q4

REPORT INFORMATION
  Report Type: Spontaneous
  Country: PL (occurrence: PL)
  Receive Date: 20140709
  Receipt Date: 20141202
  Transmission Date: 20150528
  Serious: Yes (Life-Threatening)
  Sender: FDA-Public Use
  Company Number: PL-BAYER-2014-101110

PATIENT
  Age: 37 Year
  Sex: Male
  Weight: 65 kg

DRUGS (3)
  1. ULTRAVIST [Suspect]
     Active Substance: IOPROMIDE
     Indication: COMPUTERISED TOMOGRAM THORAX
     Dosage: 65 ML, ONCE
     Route: 042
     Dates: start: 20140630, end: 20140630
  2. ULTRAVIST [Suspect]
     Active Substance: IOPROMIDE
     Indication: UROGRAM
  3. ULTRAVIST [Suspect]
     Active Substance: IOPROMIDE
     Indication: CHRONIC OBSTRUCTIVE PULMONARY DISEASE

REACTIONS (5)
  - Loss of consciousness [Recovered/Resolved]
  - Cardiac arrest [Recovered/Resolved]
  - Respiratory arrest [Recovered/Resolved]
  - Seizure [Recovered/Resolved]
  - Agitation [Recovered/Resolved]

NARRATIVE: CASE EVENT DATE: 20140630
